FAERS Safety Report 6836372-8 (Version None)
Quarter: 2010Q3

REPORT INFORMATION
  Report Type: 
  Country: None (occurrence: None)
  Receive Date: 20100713
  Receipt Date: 20100629
  Transmission Date: 20110219
  Serious: Yes (Other)
  Sender: FDA-Public Use
  Company Number: JP-ELI_LILLY_AND_COMPANY-JP201006001211

PATIENT
  Sex: Female
  Weight: 45 kg

DRUGS (6)
  1. ZYPREXA [Suspect]
     Indication: SCHIZOPHRENIA
     Dosage: 2.5 MG, DAILY (1/D)
     Route: 048
     Dates: start: 20100406, end: 20100408
  2. ZYPREXA [Suspect]
     Dosage: 5 MG, DAILY (1/D)
     Route: 048
     Dates: start: 20100409, end: 20100428
  3. ZYPREXA [Suspect]
     Dosage: 7.5 MG, DAILY (1/D)
     Route: 048
     Dates: start: 20100429, end: 20100527
  4. ZYPREXA [Suspect]
     Dosage: 5 MG, DAILY (1/D)
     Route: 048
     Dates: start: 20100528, end: 20100603
  5. MAGMITT [Concomitant]
     Indication: CONSTIPATION
     Dosage: 330 MG, DAILY (1/D)
     Route: 048
     Dates: start: 20100514, end: 20100520
  6. MAGMITT [Concomitant]
     Dosage: 660 MG, DAILY (1/D)
     Dates: start: 20100521, end: 20100603

REACTIONS (2)
  - POSTRENAL FAILURE [None]
  - URINARY RETENTION [None]
